FAERS Safety Report 8270821-6 (Version None)
Quarter: 2012Q2

REPORT INFORMATION
  Report Type: 
  Country: None (occurrence: None)
  Receive Date: 20120410
  Receipt Date: 20120404
  Transmission Date: 20120825
  Serious: Yes (Other)
  Sender: FDA-Public Use
  Company Number: US-PFIZER INC-2012085750

PATIENT
  Sex: Male
  Weight: 190 kg

DRUGS (2)
  1. VIAGRA [Suspect]
     Indication: PENIS DISORDER
     Dosage: 60 MG, DAILY
  2. COCAINE [Concomitant]
     Indication: HIV INFECTION
     Dosage: UNK

REACTIONS (1)
  - TESTICULAR HAEMORRHAGE [None]
